FAERS Safety Report 12896266 (Version 1)
Quarter: 2016Q4

REPORT INFORMATION
  Report Type: Spontaneous
  Country: US (occurrence: US)
  Receive Date: 20161031
  Receipt Date: 20161031
  Transmission Date: 20170207
  Serious: No
  Sender: FDA-Public Use
  Company Number: US-JAZZ-2016-US-016385

PATIENT
  Sex: Female

DRUGS (44)
  1. KLONOPIN [Concomitant]
     Active Substance: CLONAZEPAM
  2. FROVA [Concomitant]
     Active Substance: FROVATRIPTAN SUCCINATE
  3. LEVOTHYROXINE SODIUM. [Concomitant]
     Active Substance: LEVOTHYROXINE SODIUM
  4. NAMENDA [Concomitant]
     Active Substance: MEMANTINE HYDROCHLORIDE
  5. VIVELLE-DOT [Concomitant]
     Active Substance: ESTRADIOL
  6. VOLTAREN [Concomitant]
     Active Substance: DICLOFENAC SODIUM
  7. BELSOMRA [Concomitant]
     Active Substance: SUVOREXANT
  8. LIOTHYRONINE SODIUM. [Concomitant]
     Active Substance: LIOTHYRONINE SODIUM
  9. LOSARTAN POTASSIUM/HCTZ [Concomitant]
  10. XYREM [Suspect]
     Active Substance: SODIUM OXYBATE
     Indication: NARCOLEPSY
     Dosage: 3 G, BID
     Route: 048
     Dates: start: 200404, end: 200404
  11. LUNESTA [Concomitant]
     Active Substance: ESZOPICLONE
  12. LORAZEPAM. [Concomitant]
     Active Substance: LORAZEPAM
  13. VALIUM [Concomitant]
     Active Substance: DIAZEPAM
  14. ALPRAZOLAM. [Concomitant]
     Active Substance: ALPRAZOLAM
  15. BACLOFEN. [Concomitant]
     Active Substance: BACLOFEN
  16. CURAMIN EXTRA STRENGTH [Concomitant]
  17. VITAMIN D3 [Concomitant]
     Active Substance: CHOLECALCIFEROL
  18. XYREM [Suspect]
     Active Substance: SODIUM OXYBATE
     Dosage: 4.5 G, BID
     Route: 048
     Dates: start: 200609, end: 2006
  19. XYREM [Suspect]
     Active Substance: SODIUM OXYBATE
     Dosage: 3.75 G, QID
     Route: 048
     Dates: start: 201110
  20. CYANOCOBALAMIN. [Concomitant]
     Active Substance: CYANOCOBALAMIN
  21. DHEA [Concomitant]
     Active Substance: PRASTERONE
  22. FLONASE ALLERGY RLF [Concomitant]
  23. SALINE [Concomitant]
     Active Substance: SODIUM CHLORIDE
  24. XYZAL [Concomitant]
     Active Substance: LEVOCETIRIZINE DIHYDROCHLORIDE
  25. AFRIN [Concomitant]
     Active Substance: OXYMETAZOLINE
  26. METOPROLOL TARTRATE. [Concomitant]
     Active Substance: METOPROLOL TARTRATE
  27. MS CONTIN [Concomitant]
     Active Substance: MORPHINE SULFATE
  28. PROMETRIUM [Concomitant]
     Active Substance: PROGESTERONE
  29. RESTASIS [Concomitant]
     Active Substance: CYCLOSPORINE
  30. XYREM [Suspect]
     Active Substance: SODIUM OXYBATE
     Dosage: 4.5 G, BID
     Route: 048
     Dates: start: 200704, end: 2007
  31. XYREM [Suspect]
     Active Substance: SODIUM OXYBATE
     Dosage: DOSE ADJUSTMENTS
     Route: 048
     Dates: start: 200706, end: 201110
  32. ASTELIN [Concomitant]
     Active Substance: AZELASTINE HYDROCHLORIDE
  33. LYRICA [Concomitant]
     Active Substance: PREGABALIN
  34. MUCINEX [Concomitant]
     Active Substance: GUAIFENESIN
  35. OMEPRAZOLE. [Concomitant]
     Active Substance: OMEPRAZOLE
  36. ALBUTEROL SULFATE HFA [Concomitant]
     Active Substance: ALBUTEROL SULFATE
  37. MYRBETRIQ [Concomitant]
     Active Substance: MIRABEGRON
  38. PHENTERMINE HCL [Concomitant]
     Active Substance: PHENTERMINE HYDROCHLORIDE
  39. PROBIOTIC [Concomitant]
     Active Substance: PROBIOTICS NOS
  40. SINGULAIR [Concomitant]
     Active Substance: MONTELUKAST SODIUM
  41. ZOMIG [Concomitant]
     Active Substance: ZOLMITRIPTAN
  42. MAXALT-MLT [Concomitant]
     Active Substance: RIZATRIPTAN BENZOATE
  43. NORCO [Concomitant]
     Active Substance: ACETAMINOPHEN\HYDROCODONE BITARTRATE
  44. VALACYCLOVIR HCL [Concomitant]
     Active Substance: VALACYCLOVIR HYDROCHLORIDE

REACTIONS (1)
  - Hypertension [Recovering/Resolving]
